FAERS Safety Report 8469917-5 (Version None)
Quarter: 2012Q2

REPORT INFORMATION
  Report Type: 
  Country: None (occurrence: None)
  Receive Date: 20120627
  Receipt Date: 20120618
  Transmission Date: 20120825
  Serious: Yes (Hospitalization)
  Sender: FDA-Public Use
  Company Number: US-BIOGENIDEC-2012BI011604

PATIENT
  Age: 51 Year
  Sex: Female

DRUGS (1)
  1. TYSABRI [Suspect]
     Indication: MULTIPLE SCLEROSIS
     Route: 042
     Dates: start: 20111110

REACTIONS (6)
  - BACK DISORDER [None]
  - SOMNOLENCE [None]
  - GASTRIC DISORDER [None]
  - INTESTINAL OBSTRUCTION [None]
  - MEMORY IMPAIRMENT [None]
  - CONFUSIONAL STATE [None]
